FAERS Safety Report 16905829 (Version 1)
Quarter: 2019Q4

REPORT INFORMATION
  Report Type: Spontaneous
  Country: CA (occurrence: CA)
  Receive Date: 20191010
  Receipt Date: 20191010
  Transmission Date: 20200122
  Serious: Yes (Disabling)
  Sender: FDA-Public Use
  Company Number: CA-TEVA-2019-CA-1119288

PATIENT
  Sex: Female

DRUGS (3)
  1. VENLAFAXINE HYDROCHLORIDE. [Suspect]
     Active Substance: VENLAFAXINE HYDROCHLORIDE
     Indication: ANXIETY
     Route: 048
  2. CITALOPRAM [Concomitant]
     Active Substance: CITALOPRAM HYDROBROMIDE
  3. ATIVAN [Concomitant]
     Active Substance: LORAZEPAM

REACTIONS (17)
  - Abdominal pain upper [Unknown]
  - Chest pain [Unknown]
  - Drug dependence [Unknown]
  - Hot flush [Unknown]
  - Myalgia [Unknown]
  - Weight increased [Unknown]
  - Feeling cold [Unknown]
  - Hyperhidrosis [Unknown]
  - Insomnia [Unknown]
  - Drug ineffective [Unknown]
  - Withdrawal syndrome [Unknown]
  - Fluid retention [Unknown]
  - Headache [Unknown]
  - Decreased appetite [Unknown]
  - Nausea [Unknown]
  - Increased appetite [Unknown]
  - Fatigue [Unknown]
